FAERS Safety Report 22590746 (Version 1)
Quarter: 2023Q2

REPORT INFORMATION
  Report Type: Spontaneous
  Country: None (occurrence: US)
  Receive Date: 20230612
  Receipt Date: 20230612
  Transmission Date: 20230722
  Serious: No
  Sender: FDA-Public Use
  Company Number: US-Nova Laboratories Limited-2142604

PATIENT
  Age: 5 Year
  Sex: Female
  Weight: 21.7 kg

DRUGS (1)
  1. PURIXAN [Suspect]
     Active Substance: MERCAPTOPURINE
     Indication: Chronic myeloid leukaemia
     Route: 048
     Dates: start: 202202

REACTIONS (3)
  - Product storage error [None]
  - No adverse event [None]
  - Off label use [None]
